FAERS Safety Report 6180654-2 (Version None)
Quarter: 2009Q2

REPORT INFORMATION
  Report Type: 
  Country: None (occurrence: None)
  Receive Date: 20090506
  Receipt Date: 20090427
  Transmission Date: 20091009
  Serious: Yes (Hospitalization, Other)
  Sender: FDA-Public Use
  Company Number: FR-JNJFOC-20090107073

PATIENT
  Age: 26 Year
  Sex: Female
  Weight: 50 kg

DRUGS (3)
  1. REMICADE [Suspect]
     Indication: CROHN'S DISEASE
     Dosage: 200 MG
     Route: 042
  2. TRILEPTAL [Concomitant]
     Indication: EPILEPSY
  3. CORTANCYL [Concomitant]

REACTIONS (2)
  - COMA [None]
  - EPILEPSY [None]
